FAERS Safety Report 8051398-7 (Version None)
Quarter: 2012Q1

REPORT INFORMATION
  Report Type: 
  Country: None (occurrence: None)
  Receive Date: 20120117
  Receipt Date: 20120109
  Transmission Date: 20120608
  Serious: Yes (Hospitalization)
  Sender: FDA-Public Use
  Company Number: US-ROCHE-1020760

PATIENT
  Sex: Female
  Weight: 101.7 kg

DRUGS (10)
  1. ADVAIR DISKUS 100/50 [Concomitant]
     Indication: ASTHMA
  2. FLOVENT [Concomitant]
     Indication: ASTHMA
  3. OMALIZUMAB [Suspect]
     Indication: ASTHMA
     Dates: start: 20090101
  4. VITAMIN D [Concomitant]
     Route: 048
  5. SINGULAIR [Concomitant]
     Indication: HYPERSENSITIVITY
  6. CALCIUM [Concomitant]
     Route: 048
  7. SINGULAIR [Concomitant]
     Indication: ASTHMA
     Route: 048
  8. VITAMIN B-12 [Concomitant]
     Route: 048
  9. ALBUTEROL [Concomitant]
     Indication: ASTHMA
  10. IRON [Concomitant]
     Route: 048

REACTIONS (3)
  - ANAEMIA [None]
  - ASTHMA [None]
  - MATERNAL EXPOSURE DURING PREGNANCY [None]
